FAERS Safety Report 17323692 (Version 1)
Quarter: 2020Q1

REPORT INFORMATION
  Report Type: Spontaneous
  Country: NL (occurrence: NL)
  Receive Date: 20200127
  Receipt Date: 20200127
  Transmission Date: 20200409
  Serious: Yes (Other)
  Sender: FDA-Public Use
  Company Number: NL-TEVA-2020-NL-1174042

PATIENT
  Age: 45 Year
  Sex: Female
  Weight: 75 kg

DRUGS (8)
  1. TOPAMAX (TOPIRAMAAT) [Concomitant]
  2. MOVICOLON (MACROGOL/ZOUTEN) [Concomitant]
  3. ENTOCORT (BUDESONIDE) [Concomitant]
  4. TOPAMAX (TOPIRAMAAT) [Concomitant]
  5. FENTANYL. [Concomitant]
     Active Substance: FENTANYL
  6. MAAGZUURREMMER OMEPRAZOL HTP (OMEPRAZOL) [Concomitant]
  7. HYDROCOBAMINE (HYDROXOCOBALAMINE) [Concomitant]
  8. HYDROCORTISON [Suspect]
     Active Substance: HYDROCORTISONE
     Indication: ADRENAL INSUFFICIENCY
     Dosage: TABLET WITH REGULATED RELEASE, 20 MG (MILLIGRAMS), HALF TABLET,
     Dates: start: 20191211

REACTIONS (4)
  - Product quality issue [Not Recovered/Not Resolved]
  - Wrong technique in product usage process [Not Recovered/Not Resolved]
  - Therapeutic response unexpected [Not Recovered/Not Resolved]
  - Adrenocortical insufficiency acute [Not Recovered/Not Resolved]

NARRATIVE: CASE EVENT DATE: 20191211
